FAERS Safety Report 9379759 (Version 1)
Quarter: 2013Q3

REPORT INFORMATION
  Report Type: Spontaneous
  Country: PL (occurrence: PL)
  Receive Date: 20130702
  Receipt Date: 20130702
  Transmission Date: 20140515
  Serious: Yes (Hospitalization, Other)
  Sender: FDA-Public Use
  Company Number: PHHY2013PL065706

PATIENT
  Age: 40 Year
  Sex: Female

DRUGS (4)
  1. ATENOLOL [Suspect]
     Indication: SUPRAVENTRICULAR TACHYCARDIA
     Dosage: 25 MG, BID
  2. ATENOLOL [Suspect]
     Dosage: 100 MG, DAILY
  3. IBUPROFEN [Suspect]
     Indication: LIGAMENT SPRAIN
     Dosage: 1.2 G, DAILY
  4. FLUDROCORTISONE [Concomitant]
     Indication: MINERALOCORTICOID DEFICIENCY

REACTIONS (14)
  - Hypoaldosteronism [Recovering/Resolving]
  - Hyperkalaemia [Recovered/Resolved]
  - Blood pressure decreased [Recovering/Resolving]
  - Hyponatraemia [Recovering/Resolving]
  - Bradycardia [Recovering/Resolving]
  - Paraesthesia [Recovering/Resolving]
  - Muscular weakness [Recovering/Resolving]
  - Hypotonia [Recovering/Resolving]
  - Muscle spasms [Recovering/Resolving]
  - Body temperature increased [Recovering/Resolving]
  - Electrocardiogram QT shortened [Recovering/Resolving]
  - Electrocardiogram T wave peaked [Recovering/Resolving]
  - Supraventricular tachycardia [Recovering/Resolving]
  - Ventricular tachycardia [Recovering/Resolving]
